FAERS Safety Report 8230507-0 (Version None)
Quarter: 2012Q1

REPORT INFORMATION
  Report Type: 
  Country: None (occurrence: None)
  Receive Date: 20120323
  Receipt Date: 20120315
  Transmission Date: 20120608
  Serious: Yes (Hospitalization)
  Sender: FDA-Public Use
  Company Number: US-BAYER-2011-029655

PATIENT
  Age: 30 Year
  Sex: Female
  Weight: 108.84 kg

DRUGS (9)
  1. YASMIN [Suspect]
     Indication: ACNE
  2. YASMIN [Suspect]
     Indication: CONTRACEPTION
  3. YAZ [Suspect]
     Indication: CONTRACEPTION
  4. ACCUTANE [Concomitant]
     Indication: ACNE
     Dosage: 40 MG, UNK
     Dates: start: 20081205, end: 20090409
  5. YAZ [Suspect]
     Indication: ACNE
  6. CLARAVIS [Concomitant]
     Dosage: 40 MG, UNK
  7. METFORMIN HCL [Concomitant]
     Indication: POLYCYSTIC OVARIES
     Dosage: 850 MG, UNK
     Dates: start: 20060101, end: 20090101
  8. TERBUTALINE [Concomitant]
     Dosage: UNK
     Dates: start: 20080101
  9. LEXAPRO [Concomitant]
     Indication: DEPRESSION
     Dosage: 10 MG, UNK
     Dates: start: 20070502, end: 20090829

REACTIONS (7)
  - ANGER [None]
  - ASTHENIA [None]
  - PULMONARY EMBOLISM [None]
  - ANXIETY [None]
  - FEAR [None]
  - EMOTIONAL DISTRESS [None]
  - CHEST PAIN [None]
